FAERS Safety Report 10966961 (Version 1)
Quarter: 2015Q1

REPORT INFORMATION
  Report Type: Spontaneous
  Country: US (occurrence: US)
  Receive Date: 20150330
  Receipt Date: 20150330
  Transmission Date: 20150721
  Serious: Yes (Other)
  Sender: FDA-Public Use
  Company Number: US-OTSUKA-US-2015-11413

PATIENT

DRUGS (9)
  1. ETOPOSIDE. [Suspect]
     Active Substance: ETOPOSIDE
     Dosage: 60 MG/M2, AT LEAST 24 HOURS AFTER THE LAST BUSULFAN DOSE
     Route: 042
  2. ETOPOSIDE. [Suspect]
     Active Substance: ETOPOSIDE
     Indication: STEM CELL TRANSPLANT
     Dosage: 60 MG/M2, GIVEN OVER 4 HOURS ON DAY - 3 BEFORE AUTOLOGOUS HSCT
     Route: 042
  3. CYTARABINE. [Suspect]
     Active Substance: CYTARABINE
     Indication: CHEMOTHERAPY
     Dosage: 2000 UNK, UNK
     Route: 042
  4. PALIFERMIN [Concomitant]
     Active Substance: PALIFERMIN
     Indication: PROPHYLAXIS
     Dosage: 60 MG/KG, DAILY DOSE
     Route: 042
  5. CYTARABINE. [Suspect]
     Active Substance: CYTARABINE
     Indication: STEM CELL TRANSPLANT
  6. GRANULOCYTE COLONY STIMULATING FACTOR [Concomitant]
     Active Substance: GRANULOCYTE COLONY-STIMULATING FACTOR NOS
     Dosage: 10 MG/KG, DAILY DOSE
     Route: 058
  7. GRANULOCYTE COLONY STIMULATING FACTOR [Concomitant]
     Active Substance: GRANULOCYTE COLONY-STIMULATING FACTOR NOS
     Indication: PRODUCT USED FOR UNKNOWN INDICATION
     Dosage: 5 MG/KG, DAILY DOSE
     Route: 058
  8. ETOPOSIDE. [Suspect]
     Active Substance: ETOPOSIDE
     Indication: CHEMOTHERAPY
     Dosage: 40 MG/M2, UNK
     Route: 042
  9. BUSULFEX [Suspect]
     Active Substance: BUSULFAN
     Indication: STEM CELL TRANSPLANT
     Dosage: 16 MG/KG, UNK
     Route: 042

REACTIONS (3)
  - Off label use [Unknown]
  - Electrolyte imbalance [Unknown]
  - Drug administration error [Unknown]
